FAERS Safety Report 7417247-2 (Version None)
Quarter: 2011Q2

REPORT INFORMATION
  Report Type: 
  Country: None (occurrence: None)
  Receive Date: 20110415
  Receipt Date: 20110404
  Transmission Date: 20111010
  Serious: Yes (Hospitalization, Other)
  Sender: FDA-Public Use
  Company Number: US-BAYER-201029544NA

PATIENT
  Age: 45 Year
  Sex: Female
  Weight: 65.76 kg

DRUGS (5)
  1. NEXIUM [Concomitant]
     Dosage: UNK
     Dates: start: 20080601
  2. YAZ [Suspect]
     Indication: PRODUCT USED FOR UNKNOWN INDICATION
     Dosage: UNK UNK, UNK
     Route: 048
     Dates: start: 20070601, end: 20080501
  3. ANTI-INFLAMMATORIES [Concomitant]
     Dosage: UNK UNK, PRN
     Route: 048
  4. PERCOCET [Concomitant]
     Dosage: UNK
     Dates: start: 20080617
  5. LIBRAX [Concomitant]
     Indication: ABDOMINAL PAIN
     Dosage: UNK
     Dates: start: 20080416

REACTIONS (3)
  - CHOLECYSTITIS CHRONIC [None]
  - PULMONARY EMBOLISM [None]
  - GALLBLADDER DISORDER [None]
